FAERS Safety Report 4264786-1 (Version None)
Quarter: 2004Q1

REPORT INFORMATION
  Report Type: 
  Country: None (occurrence: None)
  Receive Date: 20040102
  Receipt Date: 20031223
  Transmission Date: 20041129
  Serious: Yes (Hospitalization)
  Sender: FDA-Public Use
  Company Number: 03P-155-0243897-00

PATIENT
  Age: 40 Year
  Sex: Male

DRUGS (1)
  1. KLACID MR (BIAXIN XL) (CLARITHROMYCIN) [Suspect]
     Indication: BRONCHITIS
     Dosage: 500 MG, 1 IN 1 D, ORAL
     Route: 048

REACTIONS (1)
  - BLOOD PRESSURE DECREASED [None]
